FAERS Safety Report 9417014 (Version 1)
Quarter: 2013Q3

REPORT INFORMATION
  Report Type: Report from Study
  Country: FR (occurrence: FR)
  Receive Date: 20130724
  Receipt Date: 20130724
  Transmission Date: 20140515
  Serious: Yes (Death)
  Sender: FDA-Public Use
  Company Number: FR-TEVA-420316ISR

PATIENT
  Age: 48 Year
  Sex: Female

DRUGS (1)
  1. EFFENTORA [Suspect]
     Route: 002

REACTIONS (1)
  - Neoplasm [Fatal]
